FAERS Safety Report 20084160 (Version 1)
Quarter: 2021Q4

REPORT INFORMATION
  Report Type: Spontaneous
  Country: FR (occurrence: FR)
  Receive Date: 20211118
  Receipt Date: 20211118
  Transmission Date: 20220303
  Serious: Yes (Other)
  Sender: FDA-Public Use
  Company Number: FR-AFSSAPS-AN20214275

PATIENT
  Age: 53 Year
  Sex: Female
  Weight: 77 kg

DRUGS (4)
  1. ONDANSETRON [Suspect]
     Active Substance: ONDANSETRON
     Indication: Prophylaxis of nausea and vomiting
     Dosage: 8 MILLIGRAM, CYCLICAL
     Route: 065
     Dates: start: 20211019, end: 20211019
  2. PREDNISOLONE [Suspect]
     Active Substance: PREDNISOLONE
     Indication: Chemotherapy side effect prophylaxis
     Route: 048
     Dates: start: 20211019, end: 20211019
  3. YONDELIS [Suspect]
     Active Substance: TRABECTEDIN
     Indication: Ovarian cancer
     Dosage: 2.05 MILLIGRAM, 21 DAY
     Route: 042
     Dates: start: 20211019, end: 20211019
  4. EMEND [Suspect]
     Active Substance: APREPITANT
     Indication: Prophylaxis of nausea and vomiting
     Dosage: 1 DOSAGE FORM, TOTAL
     Route: 048
     Dates: start: 20211019, end: 20211019

REACTIONS (3)
  - Dysarthria [Recovered/Resolved]
  - Somnolence [Recovered/Resolved]
  - Feeling hot [Recovered/Resolved]

NARRATIVE: CASE EVENT DATE: 20211019
